FAERS Safety Report 6484781-1 (Version None)
Quarter: 2009Q4

REPORT INFORMATION
  Report Type: 
  Country: None (occurrence: None)
  Receive Date: 20091209
  Receipt Date: 20081017
  Transmission Date: 20100525
  Serious: Yes (Hospitalization)
  Sender: FDA-Public Use
  Company Number: A0753213A

PATIENT
  Age: 62 Year
  Sex: Female

DRUGS (18)
  1. AVANDAMET [Suspect]
     Dosage: 2MG PER DAY
     Route: 048
     Dates: start: 20051129, end: 20060301
  2. AVANDIA [Suspect]
     Dosage: 2MG PER DAY
     Route: 048
     Dates: start: 20060302, end: 20070216
  3. ALBUTEROL [Concomitant]
     Indication: ASTHMA
     Dates: start: 20020131, end: 20060301
  4. AMITRIPTYLINE [Concomitant]
     Indication: DEPRESSION
     Dates: start: 20050807, end: 20051207
  5. AMOXICILLIN [Concomitant]
     Dates: start: 20060914, end: 20060914
  6. AZITHROMYCIN [Concomitant]
     Dates: start: 20060125, end: 20060125
  7. CYMBALTA [Concomitant]
     Indication: DEPRESSION
     Dates: start: 20060302, end: 20061202
  8. DIAZEPAM [Concomitant]
     Indication: ANXIETY
     Dates: start: 20060902, end: 20061202
  9. GUAIFENESIN [Concomitant]
     Dates: start: 20020128, end: 20060328
  10. HYDROCHLOROTHIAZIDE [Concomitant]
     Indication: DIURETIC THERAPY
     Dates: start: 20060114, end: 20060614
  11. LISINOPRIL [Concomitant]
     Dates: start: 20020805, end: 20061205
  12. METFORMIN HCL [Concomitant]
     Dates: start: 20050411, end: 20051211
  13. PREDNISONE [Concomitant]
     Indication: INFLAMMATION
     Dates: start: 20020131, end: 20060301
  14. PREVACID [Concomitant]
     Dates: start: 20020128, end: 20070101
  15. SIMVASTATIN [Concomitant]
     Dates: start: 20060804, end: 20061203
  16. TEMAZEPAM [Concomitant]
     Indication: INSOMNIA
     Dates: start: 20060329, end: 20070129
  17. WELLBUTRIN [Concomitant]
     Indication: DEPRESSION
     Dates: start: 20020222, end: 20060522
  18. ZOCOR [Concomitant]
     Dates: start: 20030626, end: 20060526

REACTIONS (1)
  - CARDIAC FAILURE CONGESTIVE [None]
